FAERS Safety Report 8975550 (Version 1)
Quarter: 2012Q4

REPORT INFORMATION
  Report Type: 
  Country: US (occurrence: US)
  Receive Date: 20121219
  Receipt Date: 20121219
  Transmission Date: 20130627
  Serious: No
  Sender: FDA-Public Use
  Company Number: US-AMGEN-USASP2012069306

PATIENT
  Age: 61 Year
  Sex: Female
  Weight: 53.52 kg

DRUGS (5)
  1. PROLIA [Suspect]
     Indication: OSTEOPOROSIS POSTMENOPAUSAL
     Dosage: 60 mg, q6mo
     Route: 058
     Dates: start: 20111208, end: 201210
  2. PROLIA [Suspect]
     Dosage: UNK
     Route: 058
  3. VITAMIN D3 [Concomitant]
     Indication: OSTEOPOROSIS
     Dosage: UNK UNK, qd
     Route: 048
     Dates: start: 2010
  4. CALCIUM [Concomitant]
     Indication: OSTEOPOROSIS
     Dosage: UNK UNK, qd
     Route: 048
     Dates: start: 2003
  5. MULTIVITAMIN [Concomitant]
     Indication: MEDICAL DIET
     Dosage: UNK UNK, qd
     Route: 048

REACTIONS (2)
  - Rash pruritic [Recovering/Resolving]
  - Rash macular [Recovering/Resolving]
